FAERS Safety Report 18547995 (Version 7)
Quarter: 2021Q1

REPORT INFORMATION
  Report Type: Report from Study
  Country: BR (occurrence: BR)
  Receive Date: 20201125
  Receipt Date: 20210226
  Transmission Date: 20210419
  Serious: Yes (Death)
  Sender: FDA-Public Use
  Company Number: BR-TAKEDA-2020TUS052579

PATIENT
  Age: 54 Year
  Sex: Male

DRUGS (3)
  1. VORTIOXETINE. [Suspect]
     Active Substance: VORTIOXETINE
     Dosage: 30 MILLIGRAM
     Route: 065
  2. VORTIOXETINE. [Suspect]
     Active Substance: VORTIOXETINE
     Indication: MAJOR DEPRESSION
     Dosage: 10 MILLIGRAM
     Route: 065
  3. VORTIOXETINE. [Suspect]
     Active Substance: VORTIOXETINE
     Dosage: 20 MILLIGRAM
     Route: 065

REACTIONS (2)
  - Prescribed overdose [Unknown]
  - Completed suicide [Fatal]

NARRATIVE: CASE EVENT DATE: 202011
